FAERS Safety Report 16980764 (Version 2)
Quarter: 2019Q4

REPORT INFORMATION
  Report Type: Spontaneous
  Country: AU (occurrence: AU)
  Receive Date: 20191031
  Receipt Date: 20191127
  Transmission Date: 20200122
  Serious: Yes (Other)
  Sender: FDA-Public Use
  Company Number: AU-ALEXION-A201916582

PATIENT
  Age: 24 Year
  Sex: Female

DRUGS (2)
  1. SOLIRIS [Suspect]
     Active Substance: ECULIZUMAB
     Indication: ATYPICAL HAEMOLYTIC URAEMIC SYNDROME
     Dosage: 900 MG, QW
     Route: 042
  2. SOLIRIS [Suspect]
     Active Substance: ECULIZUMAB
     Dosage: 1200 MG, Q2W
     Route: 042

REACTIONS (6)
  - Condition aggravated [Recovered/Resolved]
  - Fluid overload [Recovered/Resolved]
  - Hypoventilation [Recovered/Resolved]
  - Haemolysis [Recovered/Resolved]
  - Pulmonary oedema [Recovered/Resolved]
  - General physical health deterioration [Recovered/Resolved]
